FAERS Safety Report 18890722 (Version 1)
Quarter: 2021Q1

REPORT INFORMATION
  Report Type: Spontaneous
  Country: US (occurrence: US)
  Receive Date: 20210215
  Receipt Date: 20210215
  Transmission Date: 20210420
  Serious: No
  Sender: FDA-Public Use
  Company Number: US-SA-2021SA046128

PATIENT
  Sex: Female

DRUGS (4)
  1. VISTARIL [HYDROXYZINE HYDROCHLORIDE] [Concomitant]
  2. DUPIXENT [Suspect]
     Active Substance: DUPILUMAB
     Indication: DERMATITIS ATOPIC
     Dosage: UNK
     Route: 058
     Dates: start: 20191016
  3. ALLEGRA [Concomitant]
     Active Substance: FEXOFENADINE HYDROCHLORIDE
  4. CLARITINE [Concomitant]
     Active Substance: LORATADINE

REACTIONS (2)
  - Inappropriate schedule of product administration [Unknown]
  - Rash [Unknown]
